FAERS Safety Report 17268804 (Version 1)
Quarter: 2020Q1

REPORT INFORMATION
  Report Type: Spontaneous
  Country: US (occurrence: US)
  Receive Date: 20200114
  Receipt Date: 20200114
  Transmission Date: 20200409
  Serious: No
  Sender: FDA-Public Use
  Company Number: US-TEVA-2020-US-1166430

PATIENT
  Age: 72 Year
  Sex: Female

DRUGS (1)
  1. JINTELI [Suspect]
     Active Substance: ETHINYL ESTRADIOL\NORETHINDRONE ACETATE
     Route: 065

REACTIONS (3)
  - Progesterone decreased [Unknown]
  - Weight decreased [Unknown]
  - Blood oestrogen decreased [Unknown]
